FAERS Safety Report 4318811-X (Version None)
Quarter: 2004Q1

REPORT INFORMATION
  Report Type: 
  Country: None (occurrence: None)
  Receive Date: 20040318
  Receipt Date: 20040311
  Transmission Date: 20041129
  Serious: Yes (Hospitalization)
  Sender: FDA-Public Use
  Company Number: FR-GLAXOSMITHKLINE-B0326495A

PATIENT
  Age: 81 Year
  Sex: Female

DRUGS (9)
  1. DEROXAT [Suspect]
     Indication: DEPRESSION
     Dosage: 10MG PER DAY
     Route: 048
     Dates: start: 19990101, end: 20040127
  2. NITRIDERM [Concomitant]
     Dosage: 15MG UNKNOWN
     Route: 061
  3. APROVEL [Concomitant]
     Indication: HYPERTENSION
     Dosage: 300MG UNKNOWN
     Route: 048
  4. EUPRESSYL [Concomitant]
     Indication: HYPERTENSION
     Dosage: 60MG UNKNOWN
     Route: 048
  5. PARACETAMOL + TRAMADOL [Concomitant]
     Dosage: 25MG UNKNOWN
     Route: 048
  6. PREVISCAN [Concomitant]
  7. SECTRAL [Concomitant]
     Route: 048
  8. VASTAREL [Concomitant]
  9. MOPRAL [Concomitant]

REACTIONS (2)
  - ELECTROCARDIOGRAM QT PROLONGED [None]
  - SYNCOPE [None]
